FAERS Safety Report 16702883 (Version 1)
Quarter: 2019Q3

REPORT INFORMATION
  Report Type: Spontaneous
  Country: US (occurrence: US)
  Receive Date: 20190814
  Receipt Date: 20190814
  Transmission Date: 20191004
  Serious: No
  Sender: FDA-Public Use
  Company Number: US-EISAI MEDICAL RESEARCH-EC-2019-060383

PATIENT
  Sex: Male

DRUGS (6)
  1. FYCOMPA [Suspect]
     Active Substance: PERAMPANEL
     Route: 048
     Dates: start: 201907, end: 201907
  2. ONFI [Concomitant]
     Active Substance: CLOBAZAM
     Indication: SEIZURE
     Route: 048
     Dates: end: 2019
  3. FYCOMPA [Suspect]
     Active Substance: PERAMPANEL
     Indication: SEIZURE
     Route: 048
     Dates: start: 201907, end: 201907
  4. FYCOMPA [Suspect]
     Active Substance: PERAMPANEL
     Route: 048
     Dates: start: 201907, end: 201907
  5. FYCOMPA [Suspect]
     Active Substance: PERAMPANEL
     Route: 048
     Dates: start: 201907, end: 201907
  6. ONFI [Concomitant]
     Active Substance: CLOBAZAM
     Route: 048
     Dates: start: 2019, end: 201907

REACTIONS (1)
  - Muscular weakness [Not Recovered/Not Resolved]

NARRATIVE: CASE EVENT DATE: 201907
